FAERS Safety Report 15053955 (Version 3)
Quarter: 2018Q4

REPORT INFORMATION
  Report Type: Spontaneous
  Country: US (occurrence: US)
  Receive Date: 20180622
  Receipt Date: 20181207
  Transmission Date: 20190204
  Serious: Yes (Disabling)
  Sender: FDA-Public Use
  Company Number: US-OTSUKA-2018_015422

PATIENT
  Sex: Male

DRUGS (6)
  1. ABILIFY [Suspect]
     Active Substance: ARIPIPRAZOLE
     Indication: ANXIETY
  2. ABILIFY [Suspect]
     Active Substance: ARIPIPRAZOLE
     Indication: OBSESSIVE-COMPULSIVE DISORDER
  3. ABILIFY [Suspect]
     Active Substance: ARIPIPRAZOLE
     Indication: SCHIZOPHRENIA
     Dosage: 10 MG, QD
     Route: 065
     Dates: start: 200901
  4. ABILIFY [Suspect]
     Active Substance: ARIPIPRAZOLE
     Indication: IRRITABILITY
  5. ABILIFY [Suspect]
     Active Substance: ARIPIPRAZOLE
     Indication: MAJOR DEPRESSION
     Dosage: 20 MG, QD
     Route: 065
     Dates: end: 201307
  6. ABILIFY [Suspect]
     Active Substance: ARIPIPRAZOLE
     Indication: AGITATION

REACTIONS (16)
  - Eating disorder [Recovered/Resolved]
  - Injury [Unknown]
  - Pain [Unknown]
  - Economic problem [Unknown]
  - Anxiety [Unknown]
  - Product use in unapproved indication [Unknown]
  - Anhedonia [Unknown]
  - Compulsive shopping [Recovered/Resolved]
  - Weight increased [Unknown]
  - Emotional distress [Unknown]
  - Gambling disorder [Recovered/Resolved]
  - Obsessive-compulsive disorder [Unknown]
  - Bankruptcy [Unknown]
  - Disability [Unknown]
  - Condition aggravated [Recovered/Resolved]
  - Impulse-control disorder [Unknown]

NARRATIVE: CASE EVENT DATE: 2009
